FAERS Safety Report 7383253-X (Version None)
Quarter: 2011Q1

REPORT INFORMATION
  Report Type: 
  Country: None (occurrence: None)
  Receive Date: 20110325
  Receipt Date: 20110325
  Transmission Date: 20110831
  Serious: Yes (Hospitalization)
  Sender: FDA-Public Use
  Company Number: None

PATIENT
  Age: 61 Year
  Sex: Female
  Weight: 100 kg

DRUGS (8)
  1. METFORMIN [Suspect]
     Indication: DIABETES MELLITUS
     Dosage: 1000 MG BID PO  CHRONIC
     Route: 048
  2. CRESTOR [Concomitant]
  3. LANTUS [Suspect]
     Indication: DIABETES MELLITUS
     Dosage: 23 UNITS DAILY  CHRONIC
  4. AMARYL [Suspect]
     Indication: DIABETES MELLITUS
     Dosage: 2 MG BID PO CHRONIC
     Route: 048
  5. EXFORGE [Concomitant]
  6. PLAVIX [Concomitant]
  7. CLORAZEPATE DIPOTASSIUM [Concomitant]
  8. TRAZODONE [Concomitant]

REACTIONS (3)
  - TREMOR [None]
  - URINARY TRACT INFECTION [None]
  - HYPOGLYCAEMIA [None]
